FAERS Safety Report 7235974-7 (Version None)
Quarter: 2011Q1

REPORT INFORMATION
  Report Type: 
  Country: None (occurrence: None)
  Receive Date: 20110120
  Receipt Date: 20110117
  Transmission Date: 20110831
  Serious: Yes (Other)
  Sender: FDA-Public Use
  Company Number: B0692546A

PATIENT
  Sex: Male

DRUGS (6)
  1. VENLAFAXINE [Concomitant]
     Dosage: 15MG PER DAY
     Route: 048
  2. ARIXTRA [Suspect]
     Dosage: 2.5MG PER DAY
     Route: 058
     Dates: start: 20101120, end: 20101216
  3. PAROXETINA [Concomitant]
     Dosage: 20MG PER DAY
     Route: 048
  4. SIMVASTATINA [Suspect]
     Dosage: 20MG PER DAY
     Route: 048
     Dates: start: 20091216
  5. FUROSEMIDE [Concomitant]
     Dosage: 500MG PER DAY
     Route: 048
  6. ALLOPURINOL [Concomitant]
     Dosage: 300MG PER DAY
     Route: 048

REACTIONS (5)
  - BLOOD CREATINE PHOSPHOKINASE INCREASED [None]
  - RHABDOMYOLYSIS [None]
  - BLOOD CREATININE INCREASED [None]
  - ASPARTATE AMINOTRANSFERASE INCREASED [None]
  - ALANINE AMINOTRANSFERASE INCREASED [None]
